FAERS Safety Report 7042402-3 (Version None)
Quarter: 2010Q4

REPORT INFORMATION
  Report Type: 
  Country: None (occurrence: None)
  Receive Date: 20101013
  Receipt Date: 20100623
  Transmission Date: 20110411
  Serious: No
  Sender: FDA-Public Use
  Company Number: US-ASTRAZENECA-2010SE29672

PATIENT
  Age: 51 Year
  Sex: Female
  Weight: 93 kg

DRUGS (4)
  1. SYMBICORT [Suspect]
     Indication: ASTHMA
     Dosage: 160 UG
     Route: 055
     Dates: start: 20100201, end: 20100201
  2. SYMBICORT [Suspect]
     Indication: CHRONIC OBSTRUCTIVE PULMONARY DISEASE
     Dosage: 160 UG
     Route: 055
     Dates: start: 20100201, end: 20100201
  3. ALBUTEROL [Concomitant]
     Indication: ASTHMA
     Route: 055
  4. ALBUTEROL [Concomitant]
     Indication: CHRONIC OBSTRUCTIVE PULMONARY DISEASE
     Route: 055

REACTIONS (4)
  - DRUG DOSE OMISSION [None]
  - DYSPNOEA [None]
  - HERPES ZOSTER [None]
  - ORAL CANDIDIASIS [None]
